FAERS Safety Report 7302258-8 (Version None)
Quarter: 2011Q1

REPORT INFORMATION
  Report Type: 
  Country: None (occurrence: None)
  Receive Date: 20110218
  Receipt Date: 20110216
  Transmission Date: 20110831
  Serious: Yes (Death, Life-Threatening)
  Sender: FDA-Public Use
  Company Number: US-BRISTOL-MYERS SQUIBB COMPANY-15321201

PATIENT
  Sex: Male

DRUGS (10)
  1. GLYBURIDE + METFORMIN HCL [Suspect]
     Route: 065
  2. RALTEGRAVIR [Suspect]
     Dosage: TABLET RALTEGRAVIR POTASSIUM
     Route: 048
  3. ALPRAZOLAM [Concomitant]
  4. EFAVIRENZ [Suspect]
     Route: 048
  5. MEPROBAMATE + ACEPROMETAZINE [Concomitant]
  6. FOSAMPRENAVIR CALCIUM [Suspect]
     Route: 048
  7. SILDENAFIL [Suspect]
     Dosage: SILDENAFIL CITRATE
     Route: 065
  8. RISPERDONE [Concomitant]
  9. RITONAVIR [Suspect]
     Route: 065
  10. VENLAFAXINE HCL [Concomitant]

REACTIONS (6)
  - INSOMNIA [None]
  - SHOCK [None]
  - METABOLIC ACIDOSIS [None]
  - VENTRICULAR ARRHYTHMIA [None]
  - DYSPNOEA [None]
  - HYPERLACTACIDAEMIA [None]
